FAERS Safety Report 15449913 (Version 3)
Quarter: 2019Q2

REPORT INFORMATION
  Report Type: Spontaneous
  Country: US (occurrence: US)
  Receive Date: 20181001
  Receipt Date: 20190408
  Transmission Date: 20190711
  Serious: Yes (Life-Threatening, Hospitalization, Disabling, Other)
  Sender: FDA-Public Use
  Company Number: US-ROCHE-2189346

PATIENT
  Sex: Male

DRUGS (2)
  1. OCREVUS [Suspect]
     Active Substance: OCRELIZUMAB
     Route: 042
  2. OCREVUS [Suspect]
     Active Substance: OCRELIZUMAB
     Indication: PRIMARY PROGRESSIVE MULTIPLE SCLEROSIS
     Dosage: ON 21/MAR/2018, 04/APR/2018 AND 21/MAR/2019 HE RECEIVED OCRELIZUMAB 600 MG.
     Route: 042

REACTIONS (7)
  - Meningitis [Unknown]
  - Inappropriate schedule of product administration [Unknown]
  - Infection [Unknown]
  - Asthenia [Unknown]
  - Coma [Recovering/Resolving]
  - Encephalitis [Unknown]
  - Quadriplegia [Unknown]
